FAERS Safety Report 9553374 (Version 1)
Quarter: 2013Q3

REPORT INFORMATION
  Report Type: Spontaneous
  Country: US (occurrence: None)
  Receive Date: 20130724
  Receipt Date: 20130724
  Transmission Date: 20140515
  Serious: Yes (Other)
  Sender: FDA-Public Use
  Company Number: PHEH2012US009024

PATIENT
  Age: 52 Year
  Sex: Female
  Weight: 121.7 kg

DRUGS (4)
  1. RECLAST [Suspect]
     Indication: SENILE OSTEOPOROSIS
     Dosage: 5 MG, YEARLY, INTRAVENOUS, SOLUTION FOR INJECTION
     Dates: start: 20120412
  2. AROMASIN (EXEMESTANE) [Concomitant]
  3. CALCIUM (CALCIUM, COLECALCIFEROL) [Concomitant]
  4. VITAMIN D (ERGOCALCIFEROL) [Concomitant]

REACTIONS (14)
  - Conjunctivitis [None]
  - Myalgia [None]
  - Pyrexia [None]
  - Asthenia [None]
  - Ocular hyperaemia [None]
  - Headache [None]
  - Photophobia [None]
  - Iridocyclitis [None]
  - Pinguecula [None]
  - Uveitis [None]
  - Eye pain [None]
  - Vision blurred [None]
  - Blepharitis [None]
  - Conjunctivochalasis [None]
